FAERS Safety Report 9455627 (Version 4)
Quarter: 2013Q4

REPORT INFORMATION
  Report Type: Spontaneous
  Country: US (occurrence: US)
  Receive Date: 20130813
  Receipt Date: 20131121
  Transmission Date: 20140711
  Serious: Yes (Other)
  Sender: FDA-Public Use
  Company Number: US-ASTELLAS-2013US008303

PATIENT
  Age: 62 Year
  Sex: Female

DRUGS (7)
  1. VESICARE [Suspect]
     Indication: HYPERTONIC BLADDER
     Dosage: 5 MG, UNKNOWN/D
     Route: 048
     Dates: start: 20130710, end: 20130716
  2. VESICARE [Suspect]
     Dosage: 10 MG, UNKNOWN/D
     Route: 048
     Dates: start: 20130717, end: 20130719
  3. PREDNISONE [Suspect]
     Indication: ORBITAL PSEUDOTUMOUR
     Dosage: 80 MG/G, UID/QD
     Route: 065
     Dates: start: 20130727
  4. PREDNISONE [Suspect]
     Dosage: 90 MG, UID/QD
     Route: 065
  5. PREDNISONE [Suspect]
     Dosage: 5 MG, UID/QD
     Route: 065
  6. JANUMET [Concomitant]
     Indication: TYPE 2 DIABETES MELLITUS
     Dosage: 50/500 DF, UNKNOWN/D
     Route: 065
  7. JANUMET [Concomitant]
     Dosage: 50/1000 DF, UNKNOWN/D
     Route: 065

REACTIONS (7)
  - Orbital pseudotumour [Recovered/Resolved]
  - Extraocular muscle disorder [Recovered/Resolved]
  - Blood glucose increased [Not Recovered/Not Resolved]
  - Urinary tract infection [Recovered/Resolved]
  - Insomnia [Unknown]
  - Tachyphrenia [Unknown]
  - Disturbance in attention [Unknown]
